FAERS Safety Report 7961924-1 (Version None)
Quarter: 2011Q4

REPORT INFORMATION
  Report Type: 
  Country: None (occurrence: None)
  Receive Date: 20111207
  Receipt Date: 20111123
  Transmission Date: 20120403
  Serious: Yes (Other)
  Sender: FDA-Public Use
  Company Number: CA-ROCHE-1017476

PATIENT
  Sex: Female
  Weight: 69 kg

DRUGS (6)
  1. FLOVENT [Concomitant]
  2. XOLAIR [Suspect]
     Dates: start: 20100303
  3. SYMBICORT [Concomitant]
  4. NASONEX [Concomitant]
  5. XOLAIR [Suspect]
     Indication: ASTHMA
     Route: 058
     Dates: start: 20051005
  6. THEO-DUR [Concomitant]

REACTIONS (8)
  - SCIATICA [None]
  - RHINORRHOEA [None]
  - OROPHARYNGEAL PAIN [None]
  - PAIN IN EXTREMITY [None]
  - NASOPHARYNGITIS [None]
  - NASAL CONGESTION [None]
  - GAIT DISTURBANCE [None]
  - NASAL POLYPS [None]
